FAERS Safety Report 7968919-2 (Version None)
Quarter: 2011Q4

REPORT INFORMATION
  Report Type: 
  Country: None (occurrence: None)
  Receive Date: 20111209
  Receipt Date: 20111207
  Transmission Date: 20120403
  Serious: No
  Sender: FDA-Public Use
  Company Number: US-BAYER-2011-117868

PATIENT
  Age: 61 Year
  Sex: Female

DRUGS (3)
  1. MAGNEVIST [Suspect]
     Indication: NUCLEAR MAGNETIC RESONANCE IMAGING BRAIN
     Dosage: 12 ML, ONCE
     Dates: start: 20111207, end: 20111207
  2. MAGNEVIST [Suspect]
     Indication: HEADACHE
  3. MAGNEVIST [Suspect]
     Indication: DIZZINESS

REACTIONS (1)
  - RASH ERYTHEMATOUS [None]
